APPROVED DRUG PRODUCT: IBANDRONATE SODIUM
Active Ingredient: IBANDRONATE SODIUM
Strength: EQ 3MG BASE/3ML
Dosage Form/Route: INJECTABLE;INTRAVENOUS
Application: A204222 | Product #001 | TE Code: AP
Applicant: APOTEX INC
Approved: Oct 16, 2015 | RLD: No | RS: Yes | Type: RX